FAERS Safety Report 8008432-X (Version None)
Quarter: 2011Q4

REPORT INFORMATION
  Report Type: 
  Country: None (occurrence: None)
  Receive Date: 20111227
  Receipt Date: 20111220
  Transmission Date: 20120403
  Serious: Yes (Disabling)
  Sender: FDA-Public Use
  Company Number: FR-ROCHE-1023884

PATIENT
  Sex: Female

DRUGS (8)
  1. IRINOTECAN HCL [Suspect]
     Indication: COLORECTAL CANCER
     Route: 042
     Dates: start: 20110518
  2. AVASTIN [Suspect]
     Route: 042
     Dates: start: 20110829, end: 20110831
  3. FLUOROURACIL [Suspect]
     Dosage: DOSE REDUCED
     Route: 040
     Dates: start: 20110829, end: 20110831
  4. IRINOTECAN HCL [Suspect]
     Route: 042
     Dates: start: 20110829, end: 20110831
  5. LEUCOVORIN CALCIUM [Concomitant]
     Dates: start: 20110518
  6. AVASTIN [Suspect]
     Indication: COLORECTAL CANCER
     Route: 042
     Dates: start: 20110518
  7. FLUOROURACIL [Suspect]
     Indication: COLORECTAL CANCER
     Route: 040
     Dates: start: 20110518
  8. LEUCOVORIN CALCIUM [Concomitant]
     Dates: start: 20110829, end: 20110831

REACTIONS (1)
  - PALMAR-PLANTAR ERYTHRODYSAESTHESIA SYNDROME [None]
